FAERS Safety Report 4945686-8 (Version None)
Quarter: 2006Q1

REPORT INFORMATION
  Report Type: 
  Country: None (occurrence: None)
  Receive Date: 20060117
  Receipt Date: 20050823
  Transmission Date: 20060701
  Serious: Yes (Other)
  Sender: FDA-Public Use
  Company Number: A03200502746

PATIENT
  Age: 62 Year
  Sex: Female
  Weight: 97.5 kg

DRUGS (15)
  1. PLAVIX [Suspect]
     Dosage: 75 MG QD ORAL
     Route: 048
     Dates: start: 20050801, end: 20050815
  2. ASPIRIN [Suspect]
     Dosage: 325 MG QD - ORAL
     Route: 048
     Dates: start: 19880101
  3. HYDROCHLOROTHIAZIDE [Concomitant]
  4. GABAPENTIN [Concomitant]
  5. RAMIPRIL [Concomitant]
  6. CETIRIZINE HYDROCHLORIDE [Concomitant]
  7. ALPRAZOLAM [Concomitant]
  8. PIRBUTEROL ACETATE [Concomitant]
  9. FLUTICASONE PROPIONATE [Concomitant]
  10. MUCINEX [Concomitant]
  11. AZELASTINE HYDROCHLORIDE [Concomitant]
  12. EZETIMIBE [Concomitant]
  13. VERAPAMIL [Concomitant]
  14. FENOFIBRATE [Concomitant]
  15. MULTIPLE OTC VITAMINS [Concomitant]

REACTIONS (5)
  - CONTUSION [None]
  - FEELING HOT [None]
  - FLUSHING [None]
  - HEADACHE [None]
  - HYPERTENSION [None]
